FAERS Safety Report 23562081 (Version 1)
Quarter: 2024Q1

REPORT INFORMATION
  Report Type: Spontaneous
  Country: FR (occurrence: FR)
  Receive Date: 20240226
  Receipt Date: 20240226
  Transmission Date: 20240409
  Serious: Yes (Hospitalization)
  Sender: FDA-Public Use
  Company Number: FR-JNJFOC-20240267890

PATIENT
  Age: 71 Year
  Sex: Male

DRUGS (2)
  1. ZYTIGA [Interacting]
     Active Substance: ABIRATERONE ACETATE
     Indication: Prostate cancer
     Route: 048
  2. ATORVASTATIN [Interacting]
     Active Substance: ATORVASTATIN
     Route: 065

REACTIONS (2)
  - Cerebrovascular accident [Unknown]
  - Drug interaction [Unknown]
